FAERS Safety Report 8268283-8 (Version None)
Quarter: 2012Q1

REPORT INFORMATION
  Report Type: 
  Country: None (occurrence: None)
  Receive Date: 20120327
  Receipt Date: 20100514
  Transmission Date: 20120608
  Serious: Yes (Other)
  Sender: FDA-Public Use
  Company Number: PHHY2010US24842

PATIENT
  Sex: Female

DRUGS (2)
  1. GLEEVEC [Suspect]
     Indication: GASTROINTESTINAL STROMAL TUMOUR
     Dosage: 400; MG, QD; 100 MGX4 TIMES A DAY,ORAL
     Route: 048
     Dates: start: 20100311
  2. GLEEVEC [Suspect]
     Indication: GASTROINTESTINAL STROMAL TUMOUR
     Dosage: 400; MG, QD; 100 MGX4 TIMES A DAY,ORAL
     Route: 048
     Dates: start: 20100413

REACTIONS (2)
  - RASH [None]
  - PRURITUS [None]
